FAERS Safety Report 9793091 (Version 1)
Quarter: 2013Q4

REPORT INFORMATION
  Report Type: Spontaneous
  Country: US (occurrence: None)
  Receive Date: 20131231
  Receipt Date: 20131231
  Transmission Date: 20140711
  Serious: Yes (Other)
  Sender: FDA-Public Use
  Company Number: None

PATIENT
  Age: 65 Year
  Sex: Female
  Weight: 78.2 kg

DRUGS (3)
  1. IFOSFAMIDE [Suspect]
  2. PACLITAXEL [Suspect]
  3. PEGFILGRASTIM [Suspect]

REACTIONS (1)
  - Death [None]
